FAERS Safety Report 12723341 (Version 1)
Quarter: 2016Q3

REPORT INFORMATION
  Report Type: Report from Study
  Country: US (occurrence: US)
  Receive Date: 20160908
  Receipt Date: 20160908
  Transmission Date: 20161109
  Serious: Yes (Other)
  Sender: FDA-Public Use
  Company Number: US-ROCHE-1825022

PATIENT
  Sex: Male

DRUGS (2)
  1. LUCENTIS [Suspect]
     Active Substance: RANIBIZUMAB
     Indication: NEOVASCULAR AGE-RELATED MACULAR DEGENERATION
     Route: 050
     Dates: start: 20160809
  2. VALIUM [Suspect]
     Active Substance: DIAZEPAM
     Indication: PRODUCT USED FOR UNKNOWN INDICATION
     Route: 042

REACTIONS (13)
  - Vision blurred [Not Recovered/Not Resolved]
  - Nervousness [Not Recovered/Not Resolved]
  - Headache [Recovering/Resolving]
  - Nausea [Recovered/Resolved]
  - Gait disturbance [Unknown]
  - Respiratory arrest [Unknown]
  - Fall [Unknown]
  - Hand fracture [Unknown]
  - Ill-defined disorder [Unknown]
  - Balance disorder [Unknown]
  - Dizziness [Unknown]
  - Feeling hot [Recovered/Resolved]
  - Depressed mood [Not Recovered/Not Resolved]
